FAERS Safety Report 5207494-2 (Version None)
Quarter: 2007Q1

REPORT INFORMATION
  Report Type: 
  Country: None (occurrence: None)
  Receive Date: 20070112
  Receipt Date: 20070109
  Transmission Date: 20070707
  Serious: Yes (Hospitalization)
  Sender: FDA-Public Use
  Company Number: US-ROXANE LABORATORIES, INC-2007-DE-00145GD

PATIENT
  Age: 27 Year
  Sex: Male

DRUGS (6)
  1. HYDROCORTISONE [Suspect]
     Indication: CROHN'S DISEASE
     Route: 042
  2. PREDNISONE TAB [Suspect]
     Indication: CROHN'S DISEASE
  3. INFLIXIMAB [Suspect]
     Indication: CROHN'S DISEASE
  4. ASACOL [Concomitant]
  5. FLAGYL [Concomitant]
     Indication: CLOSTRIDIAL INFECTION
  6. PERCOCET [Concomitant]

REACTIONS (3)
  - BACTERAEMIA [None]
  - LISTERIOSIS [None]
  - PYREXIA [None]
